FAERS Safety Report 23947523 (Version 1)
Quarter: 2024Q2

REPORT INFORMATION
  Report Type: Spontaneous
  Country: US (occurrence: US)
  Receive Date: 20240606
  Receipt Date: 20240606
  Transmission Date: 20240716
  Serious: No
  Sender: FDA-Public Use
  Company Number: US-BAYER-2024A080911

PATIENT
  Sex: Male

DRUGS (1)
  1. VITRAKVI [Suspect]
     Active Substance: LAROTRECTINIB
     Indication: NTRK gene fusion positive
     Dosage: UNK

REACTIONS (2)
  - Dizziness [Recovered/Resolved]
  - Paraesthesia [None]

NARRATIVE: CASE EVENT DATE: 20231001
